FAERS Safety Report 16109527 (Version 1)
Quarter: 2019Q1

REPORT INFORMATION
  Report Type: Spontaneous
  Country: DE (occurrence: DE)
  Receive Date: 20190324
  Receipt Date: 20190324
  Transmission Date: 20190418
  Serious: Yes (Other)
  Sender: FDA-Public Use
  Company Number: PHHY2019DE066499

PATIENT
  Sex: Male

DRUGS (3)
  1. TRAMADOLOR LONG [Suspect]
     Active Substance: TRAMADOL
     Indication: SPINAL COLUMN STENOSIS
     Dosage: UNK
     Route: 048
     Dates: start: 20190315
  2. MEKINIST [Suspect]
     Active Substance: TRAMETINIB DIMETHYL SULFOXIDE
     Indication: METASTATIC MALIGNANT MELANOMA
     Dosage: UNK
     Route: 065
     Dates: start: 201811
  3. TAFINLAR [Suspect]
     Active Substance: DABRAFENIB MESYLATE
     Indication: METASTATIC MALIGNANT MELANOMA
     Dosage: UNK
     Route: 065
     Dates: start: 201811

REACTIONS (4)
  - Epilepsy [Unknown]
  - Disorientation [Unknown]
  - Syncope [Unknown]
  - Transient ischaemic attack [Unknown]
